FAERS Safety Report 15735198 (Version 1)
Quarter: 2018Q4

REPORT INFORMATION
  Report Type: Spontaneous
  Country: FR (occurrence: FR)
  Receive Date: 20181218
  Receipt Date: 20181218
  Transmission Date: 20190205
  Serious: Yes (Hospitalization, Other)
  Sender: FDA-Public Use
  Company Number: FR-BAYER-2018-230901

PATIENT
  Age: 70 Year
  Sex: Male

DRUGS (3)
  1. STIVARGA [Suspect]
     Active Substance: REGORAFENIB
     Indication: COLORECTAL CANCER
     Dosage: 80 MG, QD
  2. STIVARGA [Suspect]
     Active Substance: REGORAFENIB
     Indication: METASTASES TO LIVER
  3. STIVARGA [Suspect]
     Active Substance: REGORAFENIB
     Indication: METASTASES TO LUNG
     Dosage: 160 MG, QD

REACTIONS (9)
  - Metastases to lung [None]
  - Disease progression [None]
  - Off label use [None]
  - Gastrointestinal toxicity [None]
  - Toxicity to various agents [None]
  - Diarrhoea [None]
  - Metastases to liver [None]
  - Angiotensin converting enzyme increased [None]
  - Acute kidney injury [None]
